FAERS Safety Report 11253876 (Version 1)
Quarter: 2015Q3

REPORT INFORMATION
  Report Type: Spontaneous
  Country: US (occurrence: None)
  Receive Date: 20150708
  Receipt Date: 20150708
  Transmission Date: 20151125
  Serious: No
  Sender: FDA-Public Use
  Company Number: None

PATIENT
  Age: 70 Year
  Sex: Female
  Weight: 96.16 kg

DRUGS (8)
  1. FLAXSEED [Concomitant]
     Active Substance: FLAX SEED
  2. VITAMIN E [Concomitant]
     Active Substance: .ALPHA.-TOCOPHEROL
  3. OMEGA-3 ACIDS [Concomitant]
     Active Substance: OMEGA-3 FATTY ACIDS
  4. ALENDRONATE SODIUM. [Suspect]
     Active Substance: ALENDRONATE SODIUM
     Indication: OSTEOPOROSIS
     Dosage: EACH TABLET : 91.363 MG?ALENDRONATE SODIUM USP ?EQUIVALENT TO 70 MG ALENDRONIC ACID, EQUIVALENT TO FOSAMOX 70MG. ?QTY. 1 PILL 1X WEEL?1X PER WEEK AM ?MOUTH, MUST SIT UP FOR 45-60 MIN. NO FOOD PRIOR TO. DRINK WATER, ^SPRING^ PRE SPRING WA 16.
     Route: 048
     Dates: start: 20150511, end: 20150511
  5. VITAMIN D3 [Concomitant]
     Active Substance: CHOLECALCIFEROL
  6. ACTONEL [Concomitant]
     Active Substance: RISEDRONATE SODIUM
  7. ZINC [Concomitant]
     Active Substance: ZINC\ZINC CHLORIDE
  8. CITRACAL [Concomitant]
     Active Substance: CALCIUM CITRATE

REACTIONS (4)
  - Joint swelling [None]
  - Oesophageal pain [None]
  - Product substitution issue [None]
  - Dyspepsia [None]

NARRATIVE: CASE EVENT DATE: 20150511
